FAERS Safety Report 16861876 (Version 1)
Quarter: 2019Q3

REPORT INFORMATION
  Report Type: Not Available
  Country: US (occurrence: US)
  Receive Date: 20190927
  Receipt Date: 20190927
  Transmission Date: 20191005
  Serious: No
  Sender: FDA-Public Use
  Company Number: US-NEUROCRINE BIOSCIENCES INC.-2019NBI02737

PATIENT
  Age: 58 Year
  Sex: Female

DRUGS (15)
  1. INGREZZA [Suspect]
     Active Substance: VALBENAZINE
     Indication: TARDIVE DYSKINESIA
     Route: 048
     Dates: start: 20190703, end: 20190710
  2. INGREZZA [Suspect]
     Active Substance: VALBENAZINE
     Dosage: AT NIGHT
     Route: 048
     Dates: start: 20190711
  3. NAMENDA [Concomitant]
     Active Substance: MEMANTINE HYDROCHLORIDE
     Indication: CATATONIA
     Route: 048
     Dates: start: 20190729
  4. REMERON [Concomitant]
     Active Substance: MIRTAZAPINE
     Indication: APPETITE DISORDER
     Route: 048
     Dates: start: 20190815
  5. VRAYLAR [Concomitant]
     Active Substance: CARIPRAZINE
     Indication: PSYCHOTIC DISORDER
     Route: 048
     Dates: start: 20190729, end: 2019
  6. ATIVAN [Concomitant]
     Active Substance: LORAZEPAM
     Indication: CATATONIA
     Dates: start: 20190729
  7. ATIVAN [Concomitant]
     Active Substance: LORAZEPAM
     Dates: end: 20190703
  8. PERIACTIN [Concomitant]
     Active Substance: CYPROHEPTADINE HYDROCHLORIDE
     Route: 048
     Dates: end: 20190703
  9. INVEGA SUSTENNA [Concomitant]
     Active Substance: PALIPERIDONE PALMITATE
     Indication: SCHIZOAFFECTIVE DISORDER
     Route: 030
     Dates: end: 20190703
  10. PROZAC [Concomitant]
     Active Substance: FLUOXETINE HYDROCHLORIDE
     Indication: DEPRESSION
     Route: 048
     Dates: end: 20190815
  11. COGENTIN [Concomitant]
     Active Substance: BENZTROPINE MESYLATE
     Indication: EXTRAPYRAMIDAL DISORDER
     Route: 048
     Dates: end: 20190710
  12. REMERON [Concomitant]
     Active Substance: MIRTAZAPINE
     Indication: SLEEP DISORDER
  13. VRAYLAR [Concomitant]
     Active Substance: CARIPRAZINE
     Route: 048
     Dates: start: 20190815
  14. KLONOPIN [Concomitant]
     Active Substance: CLONAZEPAM
     Dates: end: 20190703
  15. REMERON [Concomitant]
     Active Substance: MIRTAZAPINE
     Indication: DEPRESSION
     Dosage: EVERY NIGHT AT BEDTIME
     Route: 048
     Dates: start: 20190729, end: 2019

REACTIONS (1)
  - Somnolence [Unknown]

NARRATIVE: CASE EVENT DATE: 20190729
